FAERS Safety Report 4793691-7 (Version None)
Quarter: 2005Q4

REPORT INFORMATION
  Report Type: 
  Country: None (occurrence: None)
  Receive Date: 20051006
  Receipt Date: 20050923
  Transmission Date: 20060501
  Serious: Yes (Other)
  Sender: FDA-Public Use
  Company Number: 2005105878

PATIENT
  Sex: Male
  Weight: 86.1834 kg

DRUGS (2)
  1. VIAGRA [Suspect]
     Indication: ERECTILE DYSFUNCTION
     Dosage: (50 MG, AS NECESSARY), ORAL
     Route: 048
  2. ANTIHYPERTENSIVES (ANTIHYPERTENSIVES) [Concomitant]

REACTIONS (7)
  - DRUG EFFECT DECREASED [None]
  - OESOPHAGEAL CARCINOMA [None]
  - PENILE PAIN [None]
  - PENILE SWELLING [None]
  - PENIS DEVIATION [None]
  - PENIS DISORDER [None]
  - SKIN DISCOLOURATION [None]
